FAERS Safety Report 16913785 (Version 2)
Quarter: 2019Q4

REPORT INFORMATION
  Report Type: Spontaneous
  Country: US (occurrence: US)
  Receive Date: 20191014
  Receipt Date: 20191202
  Transmission Date: 20200122
  Serious: Yes (Death)
  Sender: FDA-Public Use
  Company Number: US-BAYER-2019-184170

PATIENT
  Age: 49 Year
  Sex: Female

DRUGS (1)
  1. ASPIRIN (CARDIO) [Suspect]
     Active Substance: ASPIRIN

REACTIONS (2)
  - Intra-abdominal haematoma [Fatal]
  - Labelled drug-drug interaction medication error [Fatal]
